FAERS Safety Report 25657211 (Version 1)
Quarter: 2025Q3

REPORT INFORMATION
  Report Type: Spontaneous
  Country: EU (occurrence: EU)
  Receive Date: 20250808
  Receipt Date: 20250808
  Transmission Date: 20251021
  Serious: Yes (Hospitalization)
  Sender: CHEPLAPHARM
  Company Number: EU-ROCHE-2341465

PATIENT
  Age: 58 Year
  Sex: Female
  Weight: 105 kg

DRUGS (13)
  1. CAPECITABINE [Suspect]
     Active Substance: CAPECITABINE
     Indication: Triple negative breast cancer
     Dosage: ON DAYS 1 TO 14, FOLLOWED BY A 7-DAY REST PERIOD IN EACH 3-WEEK TREATMENT CYCLE (AS PER PROTOCOL)...
     Route: 048
     Dates: start: 20190208
  2. CAPECITABINE [Suspect]
     Active Substance: CAPECITABINE
     Indication: Triple negative breast cancer
     Route: 048
  3. PLACEBO [Suspect]
     Active Substance: PLACEBO
     Indication: Triple negative breast cancer
     Dosage: DATE OF MOST RECENT DOSE OF BLINDED ATEZOLIZUMAB PRIOR TO SAE ONSET: 17/MAY/2019
     Route: 042
     Dates: start: 20190208
  4. METFORMIN [Concomitant]
     Active Substance: METFORMIN HYDROCHLORIDE
  5. BISOPROLOL [Concomitant]
     Active Substance: BISOPROLOL
  6. VALSARTAN [Concomitant]
     Active Substance: VALSARTAN
  7. AMLODIPINE BESYLATE [Concomitant]
     Active Substance: AMLODIPINE BESYLATE
  8. TORSEMIDE [Concomitant]
     Active Substance: TORSEMIDE
  9. PANTOPRAZOLE [Concomitant]
     Active Substance: PANTOPRAZOLE
  10. ZOFRAN [Concomitant]
     Active Substance: ONDANSETRON HYDROCHLORIDE
     Dates: start: 20190209, end: 20190213
  11. NAPROXEN [Concomitant]
     Active Substance: NAPROXEN
  12. METHOCARBAMOL [Concomitant]
     Active Substance: METHOCARBAMOL
  13. UREA [Concomitant]
     Active Substance: UREA
     Dates: start: 20190301, end: 20190517

REACTIONS (1)
  - Optic ischaemic neuropathy [Not Recovered/Not Resolved]

NARRATIVE: CASE EVENT DATE: 20190607
